FAERS Safety Report 4515498-8 (Version None)
Quarter: 2004Q4

REPORT INFORMATION
  Report Type: 
  Country: None (occurrence: None)
  Receive Date: 20041126
  Receipt Date: 20041115
  Transmission Date: 20050328
  Serious: Yes (Hospitalization, Other)
  Sender: FDA-Public Use
  Company Number: 2004093205

PATIENT
  Age: 77 Year
  Sex: Female
  Weight: 58.0604 kg

DRUGS (2)
  1. ZITHROMAX [Suspect]
     Indication: BRONCHITIS
     Dosage: 500 MG (250 MG, 1 IN 1 D), ORAL
     Route: 048
     Dates: start: 20041007, end: 20041007
  2. CANDESARTAN CILEXETIL (CANDESARTAN CILEXETIL) [Concomitant]

REACTIONS (4)
  - CATARACT [None]
  - DIZZINESS [None]
  - NIGHTMARE [None]
  - PITUITARY TUMOUR [None]
